FAERS Safety Report 5980191-1 (Version None)
Quarter: 2008Q4

REPORT INFORMATION
  Report Type: 
  Country: None (occurrence: None)
  Receive Date: 20081205
  Receipt Date: 20081124
  Transmission Date: 20090506
  Serious: Yes (Life-Threatening, Hospitalization)
  Sender: FDA-Public Use
  Company Number: US-BRISTOL-MYERS SQUIBB COMPANY-14417919

PATIENT
  Age: 72 Year
  Sex: Female
  Weight: 37 kg

DRUGS (3)
  1. CETUXIMAB [Suspect]
     Indication: PANCREATIC CARCINOMA
     Dosage: 400MG/M2 10SEP08,250MG/M2 17SEP08,24SEP,14OCT,21OCT,29OCT,05NOV08
     Dates: start: 20081105, end: 20081105
  2. OXALIPLATIN [Suspect]
     Indication: PANCREATIC CARCINOMA
     Dosage: DOSE-100MG/M2, REDUCED TO 85 MG/M2 14OCT08, BATCH 980857 EXP DATE-MAY2009
     Route: 042
     Dates: start: 20081030, end: 20081030
  3. GEMCITABINE HCL [Suspect]
     Indication: PANCREATIC CARCINOMA
     Dosage: DOSE-1000MG/M2, REDUCED TO 800 MG/M2 14OCT08
     Route: 042
     Dates: start: 20081029, end: 20081029

REACTIONS (1)
  - METABOLIC ACIDOSIS [None]
